FAERS Safety Report 5977603-6 (Version None)
Quarter: 2008Q4

REPORT INFORMATION
  Report Type: 
  Country: None (occurrence: None)
  Receive Date: 20081201
  Receipt Date: 20081201
  Transmission Date: 20090506
  Serious: Yes (Other)
  Sender: FDA-Public Use
  Company Number: None

PATIENT
  Age: 39 Year
  Sex: Female
  Weight: 88.4514 kg

DRUGS (9)
  1. MIRAPEX [Suspect]
     Indication: RESTLESS LEGS SYNDROME
     Dosage: 1.0 NIGHTLY PO
     Route: 048
     Dates: start: 20070601, end: 20081127
  2. PROVIGIL [Concomitant]
  3. ULTRAM [Concomitant]
  4. VICODIN [Concomitant]
  5. HYDROCHLOROTHIAZIDE [Concomitant]
  6. ULTRAM [Concomitant]
  7. FLEXERIL [Concomitant]
  8. OMEPRAZOLE [Concomitant]
  9. LYRICA [Concomitant]

REACTIONS (3)
  - ECONOMIC PROBLEM [None]
  - GAMBLING [None]
  - SUICIDAL IDEATION [None]
